FAERS Safety Report 21908766 (Version 6)
Quarter: 2023Q2

REPORT INFORMATION
  Report Type: Spontaneous
  Country: JP (occurrence: JP)
  Receive Date: 20230125
  Receipt Date: 20230413
  Transmission Date: 20230722
  Serious: Yes (Life-Threatening, Hospitalization, Other)
  Sender: FDA-Public Use
  Company Number: JP-ABBVIE-4273787

PATIENT
  Age: 83 Year
  Sex: Female
  Weight: 45 kg

DRUGS (7)
  1. RINVOQ [Suspect]
     Active Substance: UPADACITINIB
     Indication: Psoriatic arthropathy
     Dosage: 15 MILLIGRAM?FORM STRENGTH: 7.5 MILLIGRAM
     Route: 048
     Dates: start: 202007, end: 20230214
  2. DEXCHLORPHENIRAMINE MALEATE [Concomitant]
     Active Substance: DEXCHLORPHENIRAMINE MALEATE
     Indication: Pruritus
     Dosage: 2 MILLIGRAM
     Route: 048
  3. ESOMEPRAZOLE MAGNESIUM [Concomitant]
     Active Substance: ESOMEPRAZOLE MAGNESIUM
     Indication: Dyspepsia
     Dosage: 20 MILLIGRAM
     Route: 048
  4. LEMBOREXANT [Concomitant]
     Active Substance: LEMBOREXANT
     Indication: Insomnia
     Dosage: 2.5 MILLIGRAM
     Route: 048
  5. SHAKUYAKUKANZOTO [Concomitant]
     Active Substance: HERBALS
     Indication: Muscle spasms
     Dosage: 2.5 GRAM
     Route: 048
  6. Azilsartan and amlodipine besilate [Concomitant]
     Indication: Hypertension
     Route: 048
  7. EPLERENONE EG [Concomitant]
     Indication: Hypertension
     Dosage: 25 MILLIGRAM
     Route: 048

REACTIONS (10)
  - COVID-19 [Recovering/Resolving]
  - Dehydration [Recovering/Resolving]
  - Pyelonephritis acute [Recovered/Resolved]
  - Anaemia [Not Recovered/Not Resolved]
  - Sepsis [Recovered/Resolved]
  - Fluid intake reduced [Unknown]
  - Hypophagia [Not Recovered/Not Resolved]
  - Haemoglobin decreased [Unknown]
  - General physical health deterioration [Unknown]
  - Blood pressure decreased [Unknown]

NARRATIVE: CASE EVENT DATE: 20221225
